FAERS Safety Report 8550724-X (Version None)
Quarter: 2012Q3

REPORT INFORMATION
  Report Type: 
  Country: None (occurrence: None)
  Receive Date: 20120730
  Receipt Date: 20120723
  Transmission Date: 20120928
  Serious: Yes (Life-Threatening, Hospitalization)
  Sender: FDA-Public Use
  Company Number: ES-GLAXOSMITHKLINE-B0818691A

PATIENT
  Sex: Male

DRUGS (7)
  1. SIMVASTATIN [Concomitant]
     Dates: start: 20060201
  2. OMACOR [Suspect]
     Indication: PRODUCT USED FOR UNKNOWN INDICATION
     Route: 048
     Dates: start: 20050811, end: 20090511
  3. WARFARIN SODIUM [Suspect]
     Indication: PRODUCT USED FOR UNKNOWN INDICATION
     Dates: start: 19930101
  4. LOSARTAN POTASSIUM [Concomitant]
     Indication: PRODUCT USED FOR UNKNOWN INDICATION
     Dates: start: 20071201, end: 20090501
  5. FLUTICASONE PROPIONATE/SALMETEROL [Concomitant]
  6. FUROSEMIDE [Concomitant]
  7. ASPIRIN [Suspect]
     Indication: PRODUCT USED FOR UNKNOWN INDICATION
     Dates: start: 20080201

REACTIONS (1)
  - EPISTAXIS [None]
